FAERS Safety Report 23297998 (Version 2)
Quarter: 2023Q4

REPORT INFORMATION
  Report Type: Spontaneous
  Country: US (occurrence: US)
  Receive Date: 20231214
  Receipt Date: 20231221
  Transmission Date: 20240110
  Serious: Yes (Hospitalization)
  Sender: FDA-Public Use
  Company Number: US-BAUSCH-BL-2023-018157

PATIENT
  Age: 53 Year
  Sex: Female

DRUGS (2)
  1. SELEGILINE [Interacting]
     Active Substance: SELEGILINE
     Indication: Product used for unknown indication
     Route: 065
  2. PHENETHYLAMINE [Interacting]
     Active Substance: PHENETHYLAMINE
     Indication: Product used for unknown indication
     Dosage: 6 MONTHS
     Route: 065

REACTIONS (3)
  - Drug interaction [Unknown]
  - Subarachnoid haemorrhage [Unknown]
  - Hypertensive crisis [Unknown]
